FAERS Safety Report 5827248-3 (Version None)
Quarter: 2008Q3

REPORT INFORMATION
  Report Type: 
  Country: None (occurrence: None)
  Receive Date: 20080730
  Receipt Date: 20080718
  Transmission Date: 20090109
  Serious: Yes (Other)
  Sender: FDA-Public Use
  Company Number: DE-ROCHE-564259

PATIENT
  Sex: Female
  Weight: 78 kg

DRUGS (5)
  1. XELODA [Suspect]
     Route: 048
     Dates: start: 20070924, end: 20071210
  2. XELODA [Suspect]
     Dosage: FIFTH CYCLE, DOSE REDUCED.
     Route: 048
     Dates: start: 20080104
  3. XELODA [Suspect]
     Route: 048
     Dates: end: 20080429
  4. ZOMETA [Concomitant]
     Dates: start: 20050801
  5. TAMOXIFEN CITRATE [Concomitant]

REACTIONS (10)
  - ARTHRALGIA [None]
  - DISEASE PROGRESSION [None]
  - DYSPNOEA [None]
  - GASTRIC DISORDER [None]
  - JUGULAR VEIN THROMBOSIS [None]
  - LYMPHOEDEMA [None]
  - METASTASES TO SKIN [None]
  - PALMAR-PLANTAR ERYTHRODYSAESTHESIA SYNDROME [None]
  - PLEURAL EFFUSION [None]
  - SUBCLAVIAN VEIN THROMBOSIS [None]
